FAERS Safety Report 4341412-4 (Version None)
Quarter: 2004Q2

REPORT INFORMATION
  Report Type: 
  Country: None (occurrence: None)
  Receive Date: 20040415
  Receipt Date: 20040331
  Transmission Date: 20050107
  Serious: Yes (Hospitalization)
  Sender: FDA-Public Use
  Company Number: 2004S1000434

PATIENT
  Age: 45 Year
  Sex: Male

DRUGS (4)
  1. DOXORUBICIN HCL [Suspect]
     Indication: HEPATIC NEOPLASM MALIGNANT
     Dosage: 60 MG/M^2; EVERY THREE WEEKS; INTRAVENOUS
     Route: 042
     Dates: start: 20040227, end: 20040319
  2. FERROUS FUMARATE [Concomitant]
  3. LACTULOSE [Concomitant]
  4. AMOXICILLIN SODIUM/CLAVULANATE POTASSIUM [Concomitant]

REACTIONS (4)
  - CULTURE URINE POSITIVE [None]
  - FEBRILE NEUTROPENIA [None]
  - PNEUMONIA KLEBSIELLA [None]
  - URINARY TRACT INFECTION [None]
